FAERS Safety Report 5002387-8 (Version None)
Quarter: 2006Q2

REPORT INFORMATION
  Report Type: 
  Country: None (occurrence: None)
  Receive Date: 20060515
  Receipt Date: 20060508
  Transmission Date: 20061013
  Serious: Yes (Death)
  Sender: FDA-Public Use
  Company Number: NL-ABBOTT-06P-114-0332636-00

PATIENT
  Sex: Male
  Weight: 88 kg

DRUGS (3)
  1. HUMIRA [Suspect]
     Indication: RHEUMATOID ARTHRITIS
     Route: 058
     Dates: start: 20040922, end: 20060414
  2. METHOTREXATE [Suspect]
     Indication: RHEUMATOID ARTHRITIS
     Route: 048
     Dates: start: 20010329, end: 20060414
  3. FOLIC ACID [Concomitant]
     Indication: DRUG USE FOR UNKNOWN INDICATION
     Route: 048
     Dates: start: 20040923, end: 20060414

REACTIONS (3)
  - MEMORY IMPAIRMENT [None]
  - SKIN DISCOLOURATION [None]
  - SUDDEN DEATH [None]
